FAERS Safety Report 9518897 (Version 3)
Quarter: 2013Q4

REPORT INFORMATION
  Report Type: Spontaneous
  Country: US (occurrence: None)
  Receive Date: 20130910
  Receipt Date: 20131030
  Transmission Date: 20140711
  Serious: Yes (Hospitalization, Disabling)
  Sender: FDA-Public Use
  Company Number: ACO_38221_2013

PATIENT
  Age: 47 Year
  Sex: Female

DRUGS (18)
  1. AMPYRA [Suspect]
     Indication: PRODUCT USED FOR UNKNOWN INDICATION
     Dosage: 10 MG, Q 12 HRS, UNKNOWN
     Dates: start: 20130129
  2. AMPYRA [Suspect]
     Indication: GAIT DISTURBANCE
     Dosage: 10 MG, Q 12 HRS, UNKNOWN
     Dates: start: 20130129
  3. AMPYRA [Suspect]
     Indication: MUSCLE SPASTICITY
     Dosage: 10 MG, Q 12 HRS, UNKNOWN
     Dates: start: 20130129
  4. BUPROPION (BUPROPION) [Concomitant]
  5. NYSTATIN [Concomitant]
  6. BACLOFEN [Concomitant]
  7. VICODIN (HYDROCODONE BITARTRATE, PARACETAMOL) [Concomitant]
  8. NUVIGIL (ARMODAFINIL) [Concomitant]
  9. LYRICA (PREGABALIN) [Concomitant]
  10. ALBUTEROL [Concomitant]
  11. UROXATRAL [Concomitant]
  12. CREON 20 [Concomitant]
  13. VITAMIN D [Concomitant]
  14. VITAMIN C [Concomitant]
  15. IRON [Concomitant]
  16. MULTIVITAMIN [Concomitant]
  17. SPIRONOLACTONE (SPIRONOLACTONE) [Concomitant]
  18. FUROSEMIDE (FUROSEMIDE) [Concomitant]

REACTIONS (3)
  - Localised infection [None]
  - Wheelchair user [None]
  - Neuralgia [None]
